FAERS Safety Report 7331946-2 (Version None)
Quarter: 2011Q1

REPORT INFORMATION
  Report Type: 
  Country: None (occurrence: None)
  Receive Date: 20110304
  Receipt Date: 20110223
  Transmission Date: 20110831
  Serious: Yes (Other)
  Sender: FDA-Public Use
  Company Number: US-SANOFI-AVENTIS-2011SA004134

PATIENT
  Age: 69 Year
  Sex: Female

DRUGS (4)
  1. LORAZEPAM [Concomitant]
     Indication: ANXIETY
  2. CLOPIDOGREL BISULFATE [Suspect]
     Route: 048
     Dates: start: 20070101, end: 20110111
  3. METOPROLOL [Concomitant]
     Indication: BLOOD PRESSURE
  4. TRAZODONE [Concomitant]

REACTIONS (3)
  - PRODUCT QUALITY ISSUE [None]
  - HAEMATEMESIS [None]
  - ABDOMINAL PAIN UPPER [None]
